FAERS Safety Report 6228015-1 (Version None)
Quarter: 2009Q2

REPORT INFORMATION
  Report Type: 
  Country: None (occurrence: None)
  Receive Date: 20090612
  Receipt Date: 20090601
  Transmission Date: 20091009
  Serious: Yes (Life-Threatening, Hospitalization, Other)
  Sender: FDA-Public Use
  Company Number: JP-PFIZER INC-2009209302

PATIENT
  Age: 78 Year

DRUGS (10)
  1. ZOLOFT [Suspect]
     Dosage: 25 MG, 1X/DAY
     Route: 048
     Dates: end: 20090419
  2. ASPIRIN [Concomitant]
     Dosage: UNK
     Route: 048
  3. DISOPYRAMIDE [Concomitant]
     Route: 048
     Dates: end: 20090419
  4. AMLODIPINE BESILATE [Concomitant]
     Dosage: UNK
     Route: 048
  5. NITOROL R [Concomitant]
     Route: 048
     Dates: end: 20090419
  6. OLMETEC [Concomitant]
     Dosage: UNK
     Route: 048
  7. TENORMIN [Concomitant]
     Route: 048
     Dates: end: 20090426
  8. OMEPRAL [Concomitant]
     Route: 048
     Dates: end: 20090420
  9. SEPAZON [Concomitant]
     Dosage: UNK
     Route: 048
  10. RHYTHMY [Concomitant]
     Route: 048
     Dates: end: 20090420

REACTIONS (5)
  - ALTERED STATE OF CONSCIOUSNESS [None]
  - CENTRAL PONTINE MYELINOLYSIS [None]
  - DEMENTIA [None]
  - ENCEPHALOPATHY [None]
  - INAPPROPRIATE ANTIDIURETIC HORMONE SECRETION [None]
